FAERS Safety Report 5062295-3 (Version None)
Quarter: 2006Q3

REPORT INFORMATION
  Report Type: 
  Country: None (occurrence: None)
  Receive Date: 20060703
  Receipt Date: 20051020
  Transmission Date: 20061208
  Serious: No
  Sender: FDA-Public Use
  Company Number: 2005S1010289

PATIENT
  Age: 17 Year
  Sex: Male

DRUGS (5)
  1. CLOZAPINE [Suspect]
     Dosage: 400 MG; HS; PO
     Route: 048
     Dates: start: 20050801
  2. BUPROPION HCL [Concomitant]
  3. TOPIRAMATE [Concomitant]
  4. GALANTAMINE HYDROBROMIDE [Concomitant]
  5. SETRALINE HCL [Concomitant]

REACTIONS (1)
  - GRANULOCYTOPENIA [None]
